FAERS Safety Report 20785207 (Version 1)
Quarter: 2022Q2

REPORT INFORMATION
  Report Type: Spontaneous
  Country: US (occurrence: None)
  Receive Date: 20220504
  Receipt Date: 20220504
  Transmission Date: 20220721
  Serious: Yes (Death)
  Sender: FDA-Public Use
  Company Number: None

PATIENT
  Age: 63 Year
  Sex: Female

DRUGS (1)
  1. PROCRIT [Suspect]
     Active Substance: ERYTHROPOIETIN
     Indication: Nephrogenic anaemia
     Dosage: OTHER STRENGTH : 20000 UNIT/ML;?OTHER FREQUENCY : EVERY 2-4 WEEKS;?
     Route: 058
     Dates: start: 20200131

REACTIONS (1)
  - Death [None]

NARRATIVE: CASE EVENT DATE: 20220408
